FAERS Safety Report 25654337 (Version 3)
Quarter: 2025Q3

REPORT INFORMATION
  Report Type: Report from Study
  Country: CA (occurrence: CA)
  Receive Date: 20250807
  Receipt Date: 20250920
  Transmission Date: 20251020
  Serious: Yes (Other)
  Sender: JOHNSON AND JOHNSON
  Company Number: CA-JNJFOC-20250331696

PATIENT
  Age: 56 Year
  Sex: Male

DRUGS (6)
  1. USTEKINUMAB [Suspect]
     Active Substance: USTEKINUMAB
     Indication: Colitis ulcerative
     Route: 040
     Dates: start: 20250212
  2. USTEKINUMAB [Suspect]
     Active Substance: USTEKINUMAB
     Route: 040
  3. USTEKINUMAB [Suspect]
     Active Substance: USTEKINUMAB
     Indication: Colitis ulcerative
     Dosage: EXPIRY DATE: AUG-2027
     Route: 058
     Dates: start: 20250212
  4. USTEKINUMAB [Suspect]
     Active Substance: USTEKINUMAB
  5. PREDNISONE [Suspect]
     Active Substance: PREDNISONE
     Indication: Product used for unknown indication
     Route: 065
  6. PREDNISONE [Suspect]
     Active Substance: PREDNISONE
     Route: 065

REACTIONS (13)
  - Dyspnoea at rest [Not Recovered/Not Resolved]
  - Hand fracture [Unknown]
  - Balance disorder [Unknown]
  - Ulnar nerve injury [Recovering/Resolving]
  - Nasal congestion [Not Recovered/Not Resolved]
  - Nasopharyngitis [Recovering/Resolving]
  - Influenza [Recovering/Resolving]
  - Paraesthesia [Unknown]
  - Drug ineffective [Unknown]
  - Bowel movement irregularity [Unknown]
  - Blood pressure abnormal [Recovering/Resolving]
  - Abdominal pain [Recovering/Resolving]
  - Stress [Not Recovered/Not Resolved]

NARRATIVE: CASE EVENT DATE: 20250201
